FAERS Safety Report 24357557 (Version 2)
Quarter: 2024Q4

REPORT INFORMATION
  Report Type: Report from Study
  Country: DE (occurrence: DE)
  Receive Date: 20240924
  Receipt Date: 20241224
  Transmission Date: 20250115
  Serious: Yes (Death, Other)
  Sender: CSL BEHRING
  Company Number: DE-BEH-2024179028

PATIENT
  Age: 76 Year
  Sex: Female
  Weight: 48 kg

DRUGS (2)
  1. PRIVIGEN [Suspect]
     Active Substance: HUMAN IMMUNOGLOBULIN G
     Indication: Product used for unknown indication
     Dosage: 10 G
     Route: 042
     Dates: start: 20240610
  2. PRIVIGEN [Suspect]
     Active Substance: HUMAN IMMUNOGLOBULIN G
     Dosage: 10 G
     Route: 042
     Dates: start: 20240723

REACTIONS (4)
  - Death [Fatal]
  - Plasma cell myeloma [Unknown]
  - Abdominal discomfort [Unknown]
  - Tumour pain [Unknown]

NARRATIVE: CASE EVENT DATE: 20240709
